FAERS Safety Report 15485177 (Version 4)
Quarter: 2018Q4

REPORT INFORMATION
  Report Type: Report from Study
  Country: US (occurrence: US)
  Receive Date: 20181010
  Receipt Date: 20181203
  Transmission Date: 20190205
  Serious: Yes (Hospitalization)
  Sender: FDA-Public Use
  Company Number: US-ACTELION-A-NJ2018-180014

PATIENT
  Age: 72 Year
  Sex: Female
  Weight: 117.91 kg

DRUGS (4)
  1. OPSUMIT [Suspect]
     Active Substance: MACITENTAN
     Indication: PULMONARY ARTERIAL HYPERTENSION
     Dosage: 10 MG, QD
     Route: 048
  2. UPTRAVI [Suspect]
     Active Substance: SELEXIPAG
     Dosage: 400 MCG, BID
     Route: 048
  3. UPTRAVI [Suspect]
     Active Substance: SELEXIPAG
     Indication: PULMONARY ARTERIAL HYPERTENSION
     Dosage: 600 MCG, BID
     Route: 048
  4. REVATIO [Concomitant]
     Active Substance: SILDENAFIL CITRATE

REACTIONS (15)
  - Listless [Unknown]
  - Pneumonia [Unknown]
  - Haemorrhage [Unknown]
  - Dizziness [Unknown]
  - Upper-airway cough syndrome [Unknown]
  - Headache [Unknown]
  - Fatigue [Unknown]
  - Feeling drunk [Unknown]
  - Transfusion [Unknown]
  - Rhinorrhoea [Unknown]
  - Nasal congestion [Unknown]
  - Malaise [Unknown]
  - Wound complication [Unknown]
  - Wound haematoma [Unknown]
  - Drug hypersensitivity [Unknown]
